FAERS Safety Report 4691366-6 (Version None)
Quarter: 2005Q2

REPORT INFORMATION
  Report Type: 
  Country: None (occurrence: None)
  Receive Date: 20050614
  Receipt Date: 20041012
  Transmission Date: 20051028
  Serious: Yes (Other)
  Sender: FDA-Public Use
  Company Number: 04-21/127-04

PATIENT
  Age: 40 Year
  Sex: Male
  Weight: 95 kg

DRUGS (6)
  1. TRAMADOL HCL [Suspect]
     Dosage: ORALLY
     Route: 048
     Dates: start: 20041007, end: 20041008
  2. VANCOMYCIN [Concomitant]
  3. MORPHINE [Concomitant]
  4. ZOFRAN [Concomitant]
  5. RIFAMIN [Concomitant]
  6. SALINE [Concomitant]

REACTIONS (1)
  - NO ADVERSE EFFECT [None]
